FAERS Safety Report 4498442-1 (Version None)
Quarter: 2004Q4

REPORT INFORMATION
  Report Type: 
  Country: None (occurrence: None)
  Receive Date: 20041105
  Receipt Date: 20041022
  Transmission Date: 20050328
  Serious: Yes (Hospitalization)
  Sender: FDA-Public Use
  Company Number: B0349366A

PATIENT
  Age: 24 Month
  Sex: Female

DRUGS (1)
  1. AMOXIL [Suspect]

REACTIONS (17)
  - ACUTE GENERALISED EXANTHEMATOUS PUSTULOSIS [None]
  - AUTOIMMUNE DISORDER [None]
  - BLOOD PRESSURE DECREASED [None]
  - DRUG TOXICITY [None]
  - HEART RATE INCREASED [None]
  - KAWASAKI'S DISEASE [None]
  - LEUKAEMIA [None]
  - LEUKOCYTOSIS [None]
  - MOVEMENT DISORDER [None]
  - OEDEMA PERIPHERAL [None]
  - PERIORBITAL OEDEMA [None]
  - RESPIRATORY RATE INCREASED [None]
  - SICKLE CELL ANAEMIA WITH CRISIS [None]
  - STAPHYLOCOCCAL SCALDED SKIN SYNDROME [None]
  - STREPTOCOCCAL INFECTION [None]
  - URINARY CASTS [None]
  - VIRAL INFECTION [None]
